FAERS Safety Report 5621604-4 (Version None)
Quarter: 2008Q2

REPORT INFORMATION
  Report Type: 
  Country: None (occurrence: None)
  Receive Date: 20080206
  Receipt Date: 20080123
  Transmission Date: 20081010
  Serious: Yes (Other)
  Sender: FDA-Public Use
  Company Number: CERZ-1000051

PATIENT
  Age: 19 Year
  Sex: Male

DRUGS (1)
  1. CEREZYME [Suspect]
     Indication: GAUCHER'S DISEASE
     Dosage: 60 U/KG,Q2W,INTRAVENOUS
     Route: 042
     Dates: start: 20031018

REACTIONS (9)
  - BIPOLAR I DISORDER [None]
  - DEPRESSION [None]
  - GASTROOESOPHAGEAL REFLUX DISEASE [None]
  - HYPERBILIRUBINAEMIA [None]
  - HYPERTENSION [None]
  - KIDNEY SMALL [None]
  - MANIA [None]
  - RENAL ARTERY STENOSIS [None]
  - RENAL VESSEL DISORDER [None]
